FAERS Safety Report 15499044 (Version 4)
Quarter: 2019Q3

REPORT INFORMATION
  Report Type: Report from Study
  Country: US (occurrence: US)
  Receive Date: 20181015
  Receipt Date: 20190702
  Transmission Date: 20191004
  Serious: Yes (Other)
  Sender: FDA-Public Use
  Company Number: US-MYLANLABS-2018M1073516

PATIENT
  Age: 46 Year
  Sex: Female
  Weight: 91 kg

DRUGS (1)
  1. GLATIRAMER ACETATE INJECTION [Suspect]
     Active Substance: GLATIRAMER ACETATE
     Indication: RELAPSING-REMITTING MULTIPLE SCLEROSIS
     Dosage: 40 MILLIGRAM, Q3W
     Route: 058

REACTIONS (14)
  - Fall [Unknown]
  - Muscular weakness [Unknown]
  - Vertigo [Not Recovered/Not Resolved]
  - Decreased appetite [Unknown]
  - Product dose omission [Unknown]
  - Vomiting [Not Recovered/Not Resolved]
  - Croup infectious [Not Recovered/Not Resolved]
  - Cough [Not Recovered/Not Resolved]
  - Gallbladder disorder [Not Recovered/Not Resolved]
  - Headache [Unknown]
  - Dizziness [Not Recovered/Not Resolved]
  - Abdominal distension [Unknown]
  - Bronchitis [Not Recovered/Not Resolved]
  - Diarrhoea [Unknown]

NARRATIVE: CASE EVENT DATE: 2018
